FAERS Safety Report 6195345-1 (Version None)
Quarter: 2009Q2

REPORT INFORMATION
  Report Type: 
  Country: None (occurrence: None)
  Receive Date: 20090515
  Receipt Date: 20090504
  Transmission Date: 20091009
  Serious: Yes (Death)
  Sender: FDA-Public Use
  Company Number: 2008AL008315

PATIENT
  Age: 76 Year
  Sex: Female
  Weight: 54.4316 kg

DRUGS (16)
  1. DIGOXIN [Suspect]
     Indication: ARRHYTHMIA
     Dosage: 0.125MG, PO
     Route: 048
  2. COREG [Concomitant]
  3. ZAROXOLYN [Concomitant]
  4. WARFARIN SODIUM [Concomitant]
  5. FUROSEMIDE [Concomitant]
  6. AMIADARONE [Concomitant]
  7. ZETIA [Concomitant]
  8. LIPITOR [Concomitant]
  9. LEVOTHYROXINE SODIUM [Concomitant]
  10. MIRTAZAPINE [Concomitant]
  11. KLOR-CON [Concomitant]
  12. EVISTA [Concomitant]
  13. LORAZEPAM [Concomitant]
  14. LISINOPRIL [Concomitant]
  15. REMERON [Concomitant]
  16. CALCIUM [Concomitant]

REACTIONS (9)
  - ASTHENIA [None]
  - ATRIAL FIBRILLATION [None]
  - CARDIAC FAILURE CONGESTIVE [None]
  - CEREBROVASCULAR ACCIDENT [None]
  - DEHYDRATION [None]
  - DIZZINESS [None]
  - INJURY [None]
  - MITRAL VALVE DISEASE [None]
  - UNRESPONSIVE TO STIMULI [None]
